FAERS Safety Report 15405559 (Version 2)
Quarter: 2018Q4

REPORT INFORMATION
  Report Type: Spontaneous
  Country: JP (occurrence: JP)
  Receive Date: 20180920
  Receipt Date: 20181210
  Transmission Date: 20190204
  Serious: Yes (Hospitalization, Other)
  Sender: FDA-Public Use
  Company Number: JP-LUPIN PHARMACEUTICALS INC.-2018-06382

PATIENT
  Age: 82 Year
  Sex: Male

DRUGS (4)
  1. PEG-3350, NA2SO4, NACL, KCL, C6H7NAO6 AND C6H8O6 [Suspect]
     Active Substance: ASCORBIC ACID\POLYETHYLENE GLYCOL 3350\POTASSIUM CHLORIDE\SODIUM ASCORBATE\SODIUM CHLORIDE\SODIUM SULFATE
     Indication: BOWEL PREPARATION
     Dosage: 2 L, SINGLE (IN 1 HOUR)
     Route: 048
  2. ASCORBIC ACID. [Suspect]
     Active Substance: ASCORBIC ACID
     Indication: BOWEL PREPARATION
     Dosage: 2 L, SINGLE (IN 1 HOUR)
     Route: 048
  3. ASCORBIC ACID. [Suspect]
     Active Substance: ASCORBIC ACID
     Dosage: 1 L, SINGLE
     Route: 048
  4. PEG-3350, NA2SO4, NACL, KCL, C6H7NAO6 AND C6H8O6 [Suspect]
     Active Substance: ASCORBIC ACID\POLYETHYLENE GLYCOL 3350\POTASSIUM CHLORIDE\SODIUM ASCORBATE\SODIUM CHLORIDE\SODIUM SULFATE
     Dosage: 1 L, SINGLE
     Route: 048

REACTIONS (3)
  - Acute myocardial infarction [Recovered/Resolved]
  - Extra dose administered [Unknown]
  - Cardiogenic shock [Recovered/Resolved]
